FAERS Safety Report 5715214-8 (Version None)
Quarter: 2008Q2

REPORT INFORMATION
  Report Type: 
  Country: None (occurrence: None)
  Receive Date: 20080423
  Receipt Date: 20080415
  Transmission Date: 20081010
  Serious: Yes (Hospitalization)
  Sender: FDA-Public Use
  Company Number: US-ELI_LILLY_AND_COMPANY-US200804004050

PATIENT
  Sex: Female

DRUGS (4)
  1. CYMBALTA [Suspect]
     Indication: DEPRESSION
     Dosage: 30 MG, DAILY (1/D)
     Route: 048
  2. LEVOTHYROXINE SODIUM [Concomitant]
  3. PREVACID [Concomitant]
  4. ALPRAZOLAM [Concomitant]

REACTIONS (1)
  - GASTROINTESTINAL TUBE INSERTION [None]
